FAERS Safety Report 6577516-5 (Version None)
Quarter: 2010Q1

REPORT INFORMATION
  Report Type: 
  Country: None (occurrence: None)
  Receive Date: 20100211
  Receipt Date: 20100129
  Transmission Date: 20100710
  Serious: Yes (Hospitalization)
  Sender: FDA-Public Use
  Company Number: US-MYLANLABS-2010S1001529

PATIENT
  Age: 57 Year
  Sex: Female
  Weight: 62.6 kg

DRUGS (15)
  1. PHENYTOIN SODIUM [Suspect]
     Indication: EPILEPSY
     Route: 048
     Dates: end: 20091210
  2. PHENYTOIN SODIUM [Suspect]
     Route: 048
     Dates: start: 20091212, end: 20091222
  3. ASPIRIN [Concomitant]
     Route: 048
     Dates: start: 20090618
  4. AVONEX [Concomitant]
     Route: 030
     Dates: start: 20090618
  5. LEXAPRO [Concomitant]
     Route: 048
     Dates: start: 20090618
  6. POLYETHYLENE GLYCOL 3350 POWDER FOR SOLUTION [Concomitant]
     Dosage: MIX ONE CAPFUL (17GM) IN 4-8 OZ LIQUID
     Route: 048
     Dates: start: 20090618
  7. TIZANIDINE HCL [Concomitant]
     Route: 048
     Dates: start: 20090618
  8. BACLOFEN [Concomitant]
     Route: 048
     Dates: start: 20090618
  9. CERTAGEN [Concomitant]
     Route: 048
     Dates: start: 20090618
  10. LORAZEPAM [Concomitant]
     Indication: ANXIETY
     Route: 048
     Dates: start: 20090817
  11. RANITIDINE [Concomitant]
     Route: 048
     Dates: start: 20090824
  12. LEVETIRACETAM [Concomitant]
     Route: 048
     Dates: start: 20090824
  13. LEVOTHYROXINE SODIUM [Concomitant]
     Dosage: ONCE DAILY ON MONDAY, TUESDAY, WEDNESDAY, THURSDAY AND FRIDAY - CHECK PULSE WEEKLY
     Route: 048
     Dates: start: 20100115
  14. LEVOTHYROXINE SODIUM [Concomitant]
     Dosage: ONCE DAILY ON SATURDAY AND SUNDAY - CHECK PULSE WEEKLY
     Route: 048
     Dates: start: 20100115
  15. ACETAMINOPHEN [Concomitant]
     Dosage: PRN
     Route: 048
     Dates: start: 20090618

REACTIONS (3)
  - ANTICONVULSANT DRUG LEVEL DECREASED [None]
  - CONVULSION [None]
  - DRUG INEFFECTIVE [None]
